FAERS Safety Report 5671240-9 (Version None)
Quarter: 2008Q1

REPORT INFORMATION
  Report Type: 
  Country: None (occurrence: None)
  Receive Date: 20080318
  Receipt Date: 20080307
  Transmission Date: 20080703
  Serious: Yes (Disabling, Other)
  Sender: FDA-Public Use
  Company Number: DE-PFIZER INC-2007036663

PATIENT
  Sex: Male
  Weight: 75 kg

DRUGS (3)
  1. GABAPENTIN [Suspect]
     Indication: BACK PAIN
     Route: 048
  2. GABAPENTIN [Interacting]
     Indication: HYPOAESTHESIA
  3. XALATAN [Interacting]
     Indication: GLAUCOMA
     Route: 047

REACTIONS (8)
  - ALVEOLAR OSTEITIS [None]
  - BONE DISORDER [None]
  - DRUG INTERACTION [None]
  - IMPAIRED HEALING [None]
  - NEURITIS [None]
  - OSTEOMYELITIS [None]
  - OSTEONECROSIS [None]
  - TOOTH DISORDER [None]
